FAERS Safety Report 10024433 (Version 1)
Quarter: 2014Q1

REPORT INFORMATION
  Report Type: Spontaneous
  Country: US (occurrence: US)
  Receive Date: 20140320
  Receipt Date: 20140320
  Transmission Date: 20141002
  Serious: No
  Sender: FDA-Public Use
  Company Number: US-ENDO PHARMACEUTICALS INC.-OPCR20140037

PATIENT
  Sex: Female

DRUGS (3)
  1. OPANA ER 30MG [Suspect]
     Indication: PAIN
     Route: 048
  2. PERCOCET 10MG/325MG [Suspect]
     Indication: BREAKTHROUGH PAIN
     Dosage: 40/1300 MG
     Route: 048
     Dates: end: 201312
  3. PERCOCET 10MG/325MG [Suspect]
     Dosage: 30/975 MG
     Route: 048
     Dates: start: 201312

REACTIONS (1)
  - Drug effect decreased [Not Recovered/Not Resolved]
